FAERS Safety Report 5920168-5 (Version None)
Quarter: 2008Q4

REPORT INFORMATION
  Report Type: 
  Country: None (occurrence: None)
  Receive Date: 20081016
  Receipt Date: 20081007
  Transmission Date: 20090506
  Serious: Yes (Other)
  Sender: FDA-Public Use
  Company Number: JP-ALLERGAN-0808727US

PATIENT
  Sex: Male
  Weight: 12 kg

DRUGS (6)
  1. ALESION SYRUP [Suspect]
     Indication: DRUG USE FOR UNKNOWN INDICATION
     Dosage: 0.5 G, QD
     Route: 048
     Dates: start: 20080616, end: 20080703
  2. MUCODYNE [Concomitant]
     Dosage: 0.6 G, UNK
     Route: 048
     Dates: start: 20080609, end: 20080614
  3. PERIACTIN [Concomitant]
     Dosage: 0.2 G, UNK
     Route: 048
     Dates: start: 20080609, end: 20080614
  4. BIOFERMIN R [Concomitant]
     Dosage: 0.6 G, UNK
     Route: 048
     Dates: start: 20080609, end: 20080619
  5. TRANSAMIN [Concomitant]
     Dosage: 0.2 G, UNK
     Route: 048
     Dates: start: 20080609, end: 20080614
  6. PASETOCIN [Concomitant]
     Dosage: 3 G, UNK
     Route: 048
     Dates: start: 20080609, end: 20080619

REACTIONS (8)
  - ALANINE AMINOTRANSFERASE INCREASED [None]
  - ASPARTATE AMINOTRANSFERASE INCREASED [None]
  - BLOOD LACTATE DEHYDROGENASE INCREASED [None]
  - HEPATIC FUNCTION ABNORMAL [None]
  - INFECTION [None]
  - PYREXIA [None]
  - RASH [None]
  - RASH PAPULAR [None]
